FAERS Safety Report 9493687 (Version 3)
Quarter: 2013Q4

REPORT INFORMATION
  Report Type: Spontaneous
  Country: JP (occurrence: JP)
  Receive Date: 20130902
  Receipt Date: 20131018
  Transmission Date: 20140711
  Serious: Yes (Hospitalization)
  Sender: FDA-Public Use
  Company Number: JP-JNJFOC-20130816337

PATIENT
  Age: 64 Year
  Sex: Male
  Weight: 61 kg

DRUGS (17)
  1. XARELTO [Suspect]
     Indication: CEREBRAL INFARCTION
     Dosage: 15MG , OM
     Route: 048
     Dates: end: 20130806
  2. TEGRETOL [Interacting]
     Indication: EPILEPSY
     Route: 048
     Dates: start: 20130611, end: 201306
  3. ALEVIATIN [Concomitant]
     Indication: PRODUCT USED FOR UNKNOWN INDICATION
     Route: 048
     Dates: end: 20130806
  4. DEPAKENE [Concomitant]
     Route: 048
     Dates: start: 201306, end: 201306
  5. MAGMITT [Concomitant]
     Route: 048
  6. CALONAL [Concomitant]
     Indication: PAIN
     Route: 048
  7. CALONAL [Concomitant]
     Indication: HYPERTHERMIA
     Route: 048
  8. PROPETO [Concomitant]
     Route: 061
  9. ZANTAC [Concomitant]
     Route: 048
     Dates: start: 20130729, end: 20130811
  10. MYSLEE [Concomitant]
     Indication: INSOMNIA
     Route: 048
     Dates: start: 20130801
  11. MYSER [Concomitant]
     Route: 061
     Dates: start: 20130802
  12. FORSENID [Concomitant]
     Indication: CONSTIPATION
     Route: 048
     Dates: start: 20130802
  13. ALLELOCK [Concomitant]
     Route: 048
  14. PREDNISOLONE [Concomitant]
     Route: 048
     Dates: start: 20130802, end: 20130805
  15. PREDNISOLONE [Concomitant]
     Route: 048
     Dates: start: 20130806
  16. PREDNISOLONE [Concomitant]
     Route: 048
     Dates: start: 20130727, end: 20130801
  17. NEOMALLERMIN TR [Concomitant]
     Route: 048
     Dates: start: 20130727

REACTIONS (3)
  - Drug-induced liver injury [Recovering/Resolving]
  - Drug eruption [Recovering/Resolving]
  - Drug interaction [Unknown]
